FAERS Safety Report 6112777-8 (Version None)
Quarter: 2009Q1

REPORT INFORMATION
  Report Type: 
  Country: None (occurrence: None)
  Receive Date: 20090312
  Receipt Date: 20090226
  Transmission Date: 20090719
  Serious: Yes (Other)
  Sender: FDA-Public Use
  Company Number: JP-PFIZER INC-2009179051

PATIENT

DRUGS (1)
  1. AMLODIPINE [Suspect]

REACTIONS (2)
  - CARDIAC ARREST [None]
  - FEELING ABNORMAL [None]
